FAERS Safety Report 12933067 (Version 1)
Quarter: 2016Q4

REPORT INFORMATION
  Report Type: Report from Study
  Country: AU (occurrence: AU)
  Receive Date: 20161111
  Receipt Date: 20161111
  Transmission Date: 20170207
  Serious: Yes (Other)
  Sender: FDA-Public Use
  Company Number: AU-REGENERON PHARMACEUTICALS, INC.-2016-23600

PATIENT

DRUGS (1)
  1. EYLEA [Suspect]
     Active Substance: AFLIBERCEPT
     Indication: DIABETIC RETINAL OEDEMA
     Dosage: 2 MG, Q4WK, TOTAL DOSES TAKEN UNSPECIFIED
     Route: 031
     Dates: start: 201607

REACTIONS (2)
  - Blood calcium decreased [Unknown]
  - Cataract operation [Unknown]

NARRATIVE: CASE EVENT DATE: 20161026
